FAERS Safety Report 8048190-6 (Version None)
Quarter: 2012Q1

REPORT INFORMATION
  Report Type: 
  Country: None (occurrence: None)
  Receive Date: 20120117
  Receipt Date: 20120105
  Transmission Date: 20120608
  Serious: Yes (Hospitalization)
  Sender: FDA-Public Use
  Company Number: JP-JNJFOC-20120102848

PATIENT
  Sex: Female

DRUGS (7)
  1. TYLENOL (CAPLET) [Suspect]
     Indication: PYREXIA
     Route: 048
     Dates: start: 20111210, end: 20120103
  2. AMBROXOL [Concomitant]
     Dates: start: 20120104
  3. COUGH SYRUP [Concomitant]
     Indication: COUGH
     Route: 048
     Dates: end: 20111210
  4. TYLENOL (CAPLET) [Suspect]
     Route: 048
  5. SELBEX [Concomitant]
     Dates: start: 20120104
  6. STOMACH AGENT [Concomitant]
     Indication: GASTRIC DISORDER
     Route: 048
     Dates: start: 20111210, end: 20120103
  7. DEXTROMETHORPHAN HYDROBROMIDE [Concomitant]
     Dates: start: 20120104

REACTIONS (1)
  - HEPATITIS FULMINANT [None]
